FAERS Safety Report 8601885-5 (Version None)
Quarter: 2012Q3

REPORT INFORMATION
  Report Type: 
  Country: None (occurrence: None)
  Receive Date: 20120817
  Receipt Date: 20120616
  Transmission Date: 20120928
  Serious: No
  Sender: FDA-Public Use
  Company Number: US-BRISTOL-MYERS SQUIBB COMPANY-16595241

PATIENT
  Age: 72 Year
  Sex: Female
  Weight: 63 kg

DRUGS (2)
  1. SPRYCEL [Suspect]
     Indication: CHRONIC MYELOID LEUKAEMIA
     Dosage: STARTED: SINCE OCT,EXP:DEC2014 2A6005A,EXP:JAN2015
     Route: 048
  2. LISINOPRIL [Concomitant]

REACTIONS (5)
  - HYPOTONIA [None]
  - INSOMNIA [None]
  - HYPERSENSITIVITY [None]
  - HAIR COLOUR CHANGES [None]
  - ANXIETY [None]
